FAERS Safety Report 25305125 (Version 1)
Quarter: 2025Q2

REPORT INFORMATION
  Report Type: Spontaneous
  Country: US (occurrence: None)
  Receive Date: 20250513
  Receipt Date: 20250513
  Transmission Date: 20250716
  Serious: Yes (Hospitalization)
  Sender: FDA-CTU
  Company Number: None

PATIENT
  Age: 75 Year
  Sex: Male
  Weight: 85 kg

DRUGS (1)
  1. LOSARTAN POTASSIUM [Suspect]
     Active Substance: LOSARTAN POTASSIUM
     Indication: Hypertension
     Dosage: FREQUENCY : AT BEDTIME;?
     Route: 048
     Dates: start: 20230606, end: 20231215

REACTIONS (13)
  - Cough [None]
  - Wheezing [None]
  - Dyspnoea [None]
  - Sinus tachycardia [None]
  - Pneumonia [None]
  - Hyperglycaemia [None]
  - Chronic obstructive pulmonary disease [None]
  - Leukocytosis [None]
  - Ileus [None]
  - Abdominal pain [None]
  - Abdominal distension [None]
  - Hyponatraemia [None]
  - Hospice care [None]

NARRATIVE: CASE EVENT DATE: 20231201
